FAERS Safety Report 20724806 (Version 5)
Quarter: 2022Q2

REPORT INFORMATION
  Report Type: Report from Study
  Country: CA (occurrence: CA)
  Receive Date: 20220419
  Receipt Date: 20220604
  Transmission Date: 20220721
  Serious: Yes (Other)
  Sender: FDA-Public Use
  Company Number: CA-GILEAD-2021-0562103

PATIENT
  Age: 78 Year
  Sex: Female
  Weight: 72 kg

DRUGS (13)
  1. SACITUZUMAB GOVITECAN [Suspect]
     Active Substance: SACITUZUMAB GOVITECAN
     Indication: Triple negative breast cancer
     Dosage: 724 MG
     Route: 042
     Dates: start: 20211209
  2. ERIBULIN [Concomitant]
     Active Substance: ERIBULIN
  3. ONDANSETRON [Concomitant]
     Active Substance: ONDANSETRON
     Dosage: 8 MG  (PRE-MEDICATION PRIOR TO TRODELVY)
     Route: 048
  4. ONDANSETRON [Concomitant]
     Active Substance: ONDANSETRON
     Dosage: 1-2 TABS
     Route: 048
  5. ONDANSETRON [Concomitant]
     Active Substance: ONDANSETRON
     Dosage: 1-2 TABS PO (PRE-MEDICATION PRIOR TO TRODELVY)
  6. APREPITANT [Concomitant]
     Active Substance: APREPITANT
     Dosage: 125 MG PERORAL  (PRE-MEDICATION PRIOR TO TRODELVY)
     Route: 048
  7. APREPITANT [Concomitant]
     Active Substance: APREPITANT
     Dosage: 1 DOSAGE FORM
     Route: 048
  8. APREPITANT [Concomitant]
     Active Substance: APREPITANT
     Dosage: 1 TABLET PO (PRE-MEDICATION PRIOR TO TRODELVY)
  9. DEXAMETHASONE [Concomitant]
     Active Substance: DEXAMETHASONE
     Dosage: 4 MG
     Route: 048
  10. DEXAMETHASONE [Concomitant]
     Active Substance: DEXAMETHASONE
     Dosage: 4 MG PER ORAL  (PRE-MEDICATION PRIOR TO TRODELVY)
  11. DEXAMETHASONE [Concomitant]
     Active Substance: DEXAMETHASONE
     Dosage: 1 TAB PO
     Route: 048
  12. DEXAMETHASONE [Concomitant]
     Active Substance: DEXAMETHASONE
     Dosage: 1 TABLET PO (PRE-MEDICATION PRIOR TO TRODELVY)
  13. SYNTHROID [Concomitant]
     Active Substance: LEVOTHYROXINE SODIUM
     Dosage: 125 MG, QD
     Route: 048

REACTIONS (46)
  - Neoplasm progression [Unknown]
  - Neoplasm progression [Unknown]
  - Hypothyroidism [Unknown]
  - Pain [Recovered/Resolved]
  - Pain in extremity [Recovered/Resolved]
  - Abdominal discomfort [Recovered/Resolved]
  - Hypokinesia [Recovered/Resolved]
  - Flushing [Recovered/Resolved]
  - Pain [Recovered/Resolved]
  - Arthralgia [Recovered/Resolved]
  - Flatulence [Unknown]
  - Hypertension [Unknown]
  - Abdominal pain lower [Recovering/Resolving]
  - Biliary colic [Recovering/Resolving]
  - Terminal insomnia [Unknown]
  - Alopecia [Unknown]
  - Hair growth abnormal [Unknown]
  - Hypoaesthesia [Not Recovered/Not Resolved]
  - Weight decreased [Unknown]
  - Diarrhoea [Recovered/Resolved]
  - Weight increased [Unknown]
  - Oedema peripheral [Unknown]
  - Dry skin [Unknown]
  - Fatigue [Recovered/Resolved]
  - Fatigue [Unknown]
  - Fatigue [Unknown]
  - Paraesthesia [Unknown]
  - Balance disorder [Unknown]
  - Muscular weakness [Not Recovered/Not Resolved]
  - Paraesthesia [Not Recovered/Not Resolved]
  - Fatigue [Recovering/Resolving]
  - Pain in extremity [Unknown]
  - Epistaxis [Unknown]
  - Rhinorrhoea [Not Recovered/Not Resolved]
  - Fatigue [Recovering/Resolving]
  - Pain [Unknown]
  - Muscle strain [Unknown]
  - Feeling cold [Unknown]
  - Neck pain [Recovering/Resolving]
  - Fatigue [Unknown]
  - Retracted nipple [Not Recovered/Not Resolved]
  - Nipple swelling [Not Recovered/Not Resolved]
  - Fatigue [Not Recovered/Not Resolved]
  - Stress [Not Recovered/Not Resolved]
  - Rash [Not Recovered/Not Resolved]
  - Inappropriate schedule of product administration [Not Recovered/Not Resolved]

NARRATIVE: CASE EVENT DATE: 20211215
